FAERS Safety Report 11327397 (Version 1)
Quarter: 2015Q3

REPORT INFORMATION
  Report Type: Spontaneous
  Country: PL (occurrence: PL)
  Receive Date: 20150731
  Receipt Date: 20150731
  Transmission Date: 20151125
  Serious: Yes (Other)
  Sender: FDA-Public Use
  Company Number: PL-APOTEX-2015AP010980

PATIENT
  Age: 8 Year
  Sex: Male

DRUGS (1)
  1. CANBIOX, TABLETKI POWLEKANE [Suspect]
     Active Substance: AZITHROMYCIN ANHYDROUS
     Indication: PROPHYLAXIS
     Route: 048

REACTIONS (3)
  - Staphylococcal infection [Unknown]
  - Bronchopulmonary aspergillosis [Unknown]
  - Haemoptysis [Unknown]
